FAERS Safety Report 25928440 (Version 1)
Quarter: 2025Q4

REPORT INFORMATION
  Report Type: Other
  Country: US (occurrence: US)
  Receive Date: 20251016
  Receipt Date: 20251016
  Transmission Date: 20260117
  Serious: Yes (Other)
  Sender: ANI
  Company Number: US-ANIPHARMA-030907

PATIENT
  Age: 51 Year
  Sex: Male

DRUGS (2)
  1. VANCOMYCIN [Suspect]
     Active Substance: VANCOMYCIN
     Indication: Staphylococcal infection
     Route: 032
  2. VANCOMYCIN [Suspect]
     Active Substance: VANCOMYCIN
     Indication: Purulent pericarditis
     Route: 032

REACTIONS (2)
  - Pericarditis constrictive [Unknown]
  - Inflammation [Unknown]
